FAERS Safety Report 7619541-9 (Version None)
Quarter: 2011Q3

REPORT INFORMATION
  Report Type: 
  Country: None (occurrence: None)
  Receive Date: 20110719
  Receipt Date: 20110711
  Transmission Date: 20111222
  Serious: Yes (Death, Other)
  Sender: FDA-Public Use
  Company Number: US-GENZYME-FLUD-1001281

PATIENT

DRUGS (2)
  1. FLUDARA [Suspect]
     Indication: LYMPHOMA
     Dosage: 25 MG/M2, QD ON DAYS 1-3
     Route: 065
  2. MITOXANTRONE [Suspect]
     Indication: LYMPHOMA
     Dosage: 12 MG/M2, QD, ON DAY 1
     Route: 065

REACTIONS (2)
  - MYELODYSPLASTIC SYNDROME [None]
  - ACUTE MYELOID LEUKAEMIA [None]
